FAERS Safety Report 4582556-1 (Version None)
Quarter: 2005Q1

REPORT INFORMATION
  Report Type: 
  Country: None (occurrence: None)
  Receive Date: 20050211
  Receipt Date: 20050211
  Transmission Date: 20050727
  Serious: Yes (Other)
  Sender: FDA-Public Use
  Company Number: None

PATIENT
  Age: 70 Year
  Sex: Male
  Weight: 70.3075 kg

DRUGS (2)
  1. MIRAPEX [Suspect]
     Dosage: 1 TAB 3X/DAY
  2. SINEMET CR [Suspect]
     Dosage: 1 TAB 4X/DAY

REACTIONS (6)
  - DEPRESSION [None]
  - HALITOSIS [None]
  - INSOMNIA [None]
  - NEOPLASM MALIGNANT [None]
  - SKIN ODOUR ABNORMAL [None]
  - TREMOR [None]
